FAERS Safety Report 18332003 (Version 14)
Quarter: 2021Q3

REPORT INFORMATION
  Report Type: Spontaneous
  Country: US (occurrence: US)
  Receive Date: 20200930
  Receipt Date: 20210929
  Transmission Date: 20211014
  Serious: Yes (Other)
  Sender: FDA-Public Use
  Company Number: US-BIOVITRUM-2020US5155

PATIENT
  Age: 58 Year
  Sex: Female

DRUGS (18)
  1. BIOTIN [Concomitant]
     Active Substance: BIOTIN
  2. VOLTAREN [Concomitant]
     Active Substance: DICLOFENAC SODIUM
  3. VITAMIN D3 [Concomitant]
     Active Substance: CHOLECALCIFEROL
  4. TOPAMAX [Concomitant]
     Active Substance: TOPIRAMATE
  5. PLAQUENIL [Concomitant]
     Active Substance: HYDROXYCHLOROQUINE SULFATE
  6. IMITREX [Concomitant]
     Active Substance: SUMATRIPTAN SUCCINATE
  7. KINERET [Suspect]
     Active Substance: ANAKINRA
     Indication: PERICARDIAL DISEASE
     Route: 058
     Dates: start: 20200922
  8. VITAMIN B12 [Concomitant]
     Active Substance: CYANOCOBALAMIN
  9. KINERET [Suspect]
     Active Substance: ANAKINRA
     Route: 058
     Dates: start: 20200922, end: 20201019
  10. PHOLIC ACIC [Concomitant]
  11. METHOTREXATE. [Concomitant]
     Active Substance: METHOTREXATE
  12. ZYRTEC [Concomitant]
     Active Substance: CETIRIZINE HYDROCHLORIDE
  13. DEXILANT [Concomitant]
     Active Substance: DEXLANSOPRAZOLE
  14. TYLENOL [Concomitant]
     Active Substance: ACETAMINOPHEN
  15. BACLOFEN. [Concomitant]
     Active Substance: BACLOFEN
  16. PREDNISONE. [Concomitant]
     Active Substance: PREDNISONE
  17. BENTYL [Concomitant]
     Active Substance: DICYCLOMINE HYDROCHLORIDE
  18. ECONAZOLE NITRATE. [Concomitant]
     Active Substance: ECONAZOLE NITRATE

REACTIONS (36)
  - Anxiety [Unknown]
  - Back pain [Unknown]
  - Pain [Unknown]
  - Mass [Unknown]
  - Injection site erythema [Unknown]
  - Pruritus [Unknown]
  - Product dose omission issue [Unknown]
  - Fatigue [Unknown]
  - Dry eye [Unknown]
  - Injection site warmth [Unknown]
  - Syringe issue [Unknown]
  - Renal impairment [Unknown]
  - Cellulitis [Unknown]
  - Nausea [Unknown]
  - Injection site rash [Unknown]
  - Injection site pain [Unknown]
  - Off label use [Unknown]
  - Localised infection [Unknown]
  - Urinary tract infection [Unknown]
  - Internal hernia [Unknown]
  - Stress at work [Unknown]
  - Abdominal pain [Unknown]
  - Inflammation [Unknown]
  - Injection site urticaria [Unknown]
  - Memory impairment [Unknown]
  - Stress [Unknown]
  - Injection site mass [Unknown]
  - Injection site discomfort [Unknown]
  - Headache [Unknown]
  - Injection site haemorrhage [Unknown]
  - Product dose omission in error [Unknown]
  - Contusion [Unknown]
  - Rash [Unknown]
  - Vision blurred [Unknown]
  - Injection site pruritus [Unknown]
  - Injection site induration [Unknown]

NARRATIVE: CASE EVENT DATE: 20200922
